FAERS Safety Report 5551115-6 (Version None)
Quarter: 2007Q4

REPORT INFORMATION
  Report Type: 
  Country: None (occurrence: None)
  Receive Date: 20071212
  Receipt Date: 20071207
  Transmission Date: 20080405
  Serious: Yes (Life-Threatening, Hospitalization)
  Sender: FDA-Public Use
  Company Number: B0491628A

PATIENT
  Age: 59 Year
  Sex: Male

DRUGS (11)
  1. PAXIL [Suspect]
     Indication: DEPRESSION
     Dosage: 10MG PER DAY
     Route: 048
     Dates: start: 20070806, end: 20070813
  2. PAXIL [Suspect]
     Dosage: 20MG PER DAY
     Route: 048
     Dates: start: 20070814, end: 20070930
  3. DESYREL [Suspect]
     Indication: DEPRESSION
     Dosage: 50MG PER DAY
     Route: 048
     Dates: start: 20070822, end: 20070930
  4. TETRAMIDE [Suspect]
     Indication: DEPRESSION
     Dosage: 10MG PER DAY
     Route: 048
     Dates: start: 20070918, end: 20070930
  5. HIRNAMIN [Suspect]
     Indication: DEPRESSION
     Dosage: 25MG PER DAY
     Route: 048
     Dates: start: 20070911, end: 20070918
  6. HIRNAMIN [Suspect]
     Dosage: 12.5MG PER DAY
     Route: 048
     Dates: start: 20070918, end: 20070930
  7. DORAL [Suspect]
     Indication: DEPRESSION
     Dosage: 15MG PER DAY
     Route: 048
     Dates: start: 20070904, end: 20070930
  8. DIAZEPAM [Suspect]
     Indication: DEPRESSION
     Dosage: 2MG THREE TIMES PER DAY
     Route: 048
     Dates: start: 20070806, end: 20070930
  9. LEVOTOMIN [Concomitant]
     Indication: DEPRESSION
     Dosage: 25MG PER DAY
     Route: 048
     Dates: start: 20070814, end: 20070911
  10. LAMISIL [Concomitant]
     Indication: TINEA INFECTION
     Dosage: 125MG PER DAY
     Route: 048
     Dates: start: 20070817, end: 20070930
  11. MYSLEE [Concomitant]
     Indication: DEPRESSION
     Dosage: 10MG PER DAY
     Route: 048
     Dates: start: 20070806, end: 20070904

REACTIONS (4)
  - CONTUSION [None]
  - LUNG INJURY [None]
  - ROAD TRAFFIC ACCIDENT [None]
  - SENSORY DISTURBANCE [None]
